FAERS Safety Report 7201846-7 (Version None)
Quarter: 2010Q4

REPORT INFORMATION
  Report Type: 
  Country: None (occurrence: None)
  Receive Date: 20101229
  Receipt Date: 20101221
  Transmission Date: 20110411
  Serious: Yes (Hospitalization)
  Sender: FDA-Public Use
  Company Number: CA-JNJFOC-20101208249

PATIENT
  Sex: Female

DRUGS (5)
  1. REMICADE [Suspect]
     Indication: CROHN'S DISEASE
     Route: 042
  2. AVALIDE [Concomitant]
  3. ELTROXIN [Concomitant]
  4. METHOTREXATE [Concomitant]
  5. ADVAIR [Concomitant]

REACTIONS (1)
  - NEPHROLITHIASIS [None]
